FAERS Safety Report 20864716 (Version 2)
Quarter: 2022Q3

REPORT INFORMATION
  Report Type: Spontaneous
  Country: US (occurrence: US)
  Receive Date: 20220524
  Receipt Date: 20220718
  Transmission Date: 20221027
  Serious: Yes (Other)
  Sender: FDA-Public Use
  Company Number: US-SUN PHARMACEUTICAL INDUSTRIES LTD-2022R1-337317

PATIENT
  Age: 38 Year
  Sex: Female

DRUGS (2)
  1. AMPHOTERICIN B [Suspect]
     Active Substance: AMPHOTERICIN B
     Indication: Acute respiratory distress syndrome
     Dosage: 5 MILLIGRAM/KILOGRAM, DAILY
     Route: 042
  2. METHYLPREDNISOLONE [Concomitant]
     Active Substance: METHYLPREDNISOLONE
     Indication: Acute respiratory distress syndrome
     Dosage: 1 MILLIGRAM/KILOGRAM, DAILY
     Route: 042

REACTIONS (1)
  - Hypokalaemia [Unknown]
